FAERS Safety Report 17850753 (Version 2)
Quarter: 2020Q2

REPORT INFORMATION
  Report Type: Spontaneous
  Country: US (occurrence: US)
  Receive Date: 20200602
  Receipt Date: 20200609
  Transmission Date: 20200714
  Serious: No
  Sender: FDA-Public Use
  Company Number: US-SA-2020SA138171

PATIENT

DRUGS (4)
  1. CABLIVI [Suspect]
     Active Substance: CAPLACIZUMAB-YHDP
     Indication: THROMBOTIC MICROANGIOPATHY
     Dosage: 11 MG, QD
     Route: 058
     Dates: start: 20200519
  2. CABLIVI [Suspect]
     Active Substance: CAPLACIZUMAB-YHDP
     Indication: THROMBOTIC MICROANGIOPATHY
     Dosage: 11 MG, QD
     Route: 058
     Dates: start: 20200519
  3. CABLIVI [Suspect]
     Active Substance: CAPLACIZUMAB-YHDP
     Indication: THROMBOTIC MICROANGIOPATHY
     Dosage: 11 MG, QD
     Route: 058
     Dates: start: 20200519
  4. CABLIVI [Suspect]
     Active Substance: CAPLACIZUMAB-YHDP
     Indication: THROMBOTIC MICROANGIOPATHY
     Dosage: 11 MG, QD
     Route: 058
     Dates: start: 20200519

REACTIONS (11)
  - Limb injury [Unknown]
  - White blood cell count increased [Unknown]
  - Epistaxis [Unknown]
  - Blood urine present [Unknown]
  - Product dose omission [Unknown]
  - Feeling abnormal [Unknown]
  - Contusion [Unknown]
  - Wound haemorrhage [Recovered/Resolved]
  - Pyrexia [Unknown]
  - Platelet count increased [Unknown]
  - Injection site pain [Unknown]

NARRATIVE: CASE EVENT DATE: 202005
